FAERS Safety Report 6571825-1 (Version None)
Quarter: 2010Q1

REPORT INFORMATION
  Report Type: 
  Country: None (occurrence: None)
  Receive Date: 20100205
  Receipt Date: 20100126
  Transmission Date: 20100710
  Serious: Yes (Hospitalization, Other)
  Sender: FDA-Public Use
  Company Number: US-BAYER-201012583NA

PATIENT
  Sex: Female

DRUGS (2)
  1. YASMIN [Suspect]
     Indication: CONTRACEPTION
     Route: 048
     Dates: start: 20090702
  2. YAZ [Suspect]
     Indication: CONTRACEPTION
     Route: 048
     Dates: start: 20090702

REACTIONS (6)
  - ABDOMINAL PAIN [None]
  - CHOLECYSTECTOMY [None]
  - CHOLELITHIASIS [None]
  - GALLBLADDER DISORDER [None]
  - NAUSEA [None]
  - VOMITING [None]
